FAERS Safety Report 6097628-2 (Version None)
Quarter: 2009Q1

REPORT INFORMATION
  Report Type: 
  Country: None (occurrence: None)
  Receive Date: 20090225
  Receipt Date: 20090225
  Transmission Date: 20090719
  Serious: Yes (Other)
  Sender: FDA-Public Use
  Company Number: None

PATIENT
  Age: 5 Month
  Sex: Male
  Weight: 7.4844 kg

DRUGS (2)
  1. XOPENEX [Suspect]
     Indication: BRONCHIOLITIS
     Dosage: 0.63MG/3ML -1 VIAL- EVERY 4-8 HOURS INHAL
     Route: 055
     Dates: start: 20090218, end: 20090223
  2. OMNICEF [Concomitant]

REACTIONS (7)
  - ANXIETY [None]
  - DYSPNOEA [None]
  - INSOMNIA [None]
  - NERVOUSNESS [None]
  - OVERDOSE [None]
  - PAIN [None]
  - WHEEZING [None]
